FAERS Safety Report 4851127-1 (Version None)
Quarter: 2005Q4

REPORT INFORMATION
  Report Type: 
  Country: None (occurrence: None)
  Receive Date: 20051212
  Receipt Date: 20051201
  Transmission Date: 20060501
  Serious: Yes (Hospitalization, Other)
  Sender: FDA-Public Use
  Company Number: US-JNJFOC-20050103661

PATIENT
  Sex: Female
  Weight: 72.58 kg

DRUGS (27)
  1. REMICADE [Suspect]
     Route: 042
  2. METHOTREXATE [Suspect]
  3. RESTORIL [Concomitant]
  4. PAXIL [Concomitant]
  5. CELEBREX [Concomitant]
  6. ZONEGRAN [Concomitant]
  7. MULTI-VITAMIN [Concomitant]
  8. MULTI-VITAMIN [Concomitant]
  9. MULTI-VITAMIN [Concomitant]
  10. MULTI-VITAMIN [Concomitant]
  11. MULTI-VITAMIN [Concomitant]
  12. MULTI-VITAMIN [Concomitant]
  13. MULTI-VITAMIN [Concomitant]
  14. MULTI-VITAMIN [Concomitant]
  15. FLAXSEED [Concomitant]
     Dosage: 0.7
  16. GLUCOSAMINE WITH CHONDROTIN [Concomitant]
  17. GLUCOSAMINE WITH CHONDROTIN [Concomitant]
  18. GLUCOSAMINE WITH CHONDROTIN [Concomitant]
  19. GLUCOSAMINE WITH CHONDROTIN [Concomitant]
  20. STEROID INJECTIONS [Concomitant]
     Dosage: 40-80 MG IM
  21. PREDNISONE [Concomitant]
     Dosage: VARIABLE
  22. NEURONTIN [Concomitant]
  23. ASCORBIC ACID [Concomitant]
  24. CALCIUM GLUCONATE [Concomitant]
  25. ALEVE [Concomitant]
  26. VITAMIN B COMPLEX CAP [Concomitant]
  27. ADVIL [Concomitant]
     Indication: PAIN

REACTIONS (1)
  - DISSEMINATED TUBERCULOSIS [None]
